FAERS Safety Report 5163235-9 (Version None)
Quarter: 2006Q4

REPORT INFORMATION
  Report Type: 
  Country: None (occurrence: None)
  Receive Date: 20061204
  Receipt Date: 20061129
  Transmission Date: 20070319
  Serious: Yes (Death)
  Sender: FDA-Public Use
  Company Number: US-ELI_LILLY_AND_COMPANY-US200611005304

PATIENT
  Age: 75 Year
  Sex: Male

DRUGS (1)
  1. ZYPREXA [Suspect]
     Indication: DELIRIUM
     Dosage: UNK, UNK

REACTIONS (5)
  - DEATH [None]
  - DELIRIUM [None]
  - PNEUMONIA ASPIRATION [None]
  - PRESCRIBED OVERDOSE [None]
  - URINARY TRACT INFECTION [None]
